FAERS Safety Report 5614000-7 (Version None)
Quarter: 2008Q1

REPORT INFORMATION
  Report Type: 
  Country: None (occurrence: None)
  Receive Date: 20080205
  Receipt Date: 20080125
  Transmission Date: 20080703
  Serious: Yes (Hospitalization)
  Sender: FDA-Public Use
  Company Number: DE-ROCHE-543862

PATIENT
  Age: 69 Year
  Weight: 82 kg

DRUGS (6)
  1. PEG-INTERFERON ALFA 2A (RO 25-8310) [Suspect]
     Indication: MALIGNANT MELANOMA
     Route: 058
     Dates: start: 20060210, end: 20060519
  2. PEG-INTERFERON ALFA 2A (RO 25-8310) [Suspect]
     Route: 058
  3. NOVALGIN [Concomitant]
  4. DELIX 2.5 [Concomitant]
     Dates: start: 19980101
  5. L-THYROXIN [Concomitant]
     Dates: start: 20070501
  6. PLAVIX [Concomitant]
     Dosage: TDD: 75.
     Dates: start: 20080101, end: 20080107

REACTIONS (1)
  - SYNCOPE [None]
